FAERS Safety Report 7691826-X (Version None)
Quarter: 2011Q3

REPORT INFORMATION
  Report Type: 
  Country: None (occurrence: None)
  Receive Date: 20110818
  Receipt Date: 20110812
  Transmission Date: 20111222
  Serious: Yes (Other)
  Sender: FDA-Public Use
  Company Number: NL-PFIZER INC-2011186658

PATIENT
  Age: 56 Year
  Sex: Male

DRUGS (1)
  1. LIPITOR [Suspect]
     Dosage: 10 MG, UNK
     Dates: start: 19960101

REACTIONS (3)
  - MYALGIA [None]
  - MUSCULOSKELETAL STIFFNESS [None]
  - BURSITIS [None]
